FAERS Safety Report 5940553-5 (Version None)
Quarter: 2008Q4

REPORT INFORMATION
  Report Type: 
  Country: None (occurrence: None)
  Receive Date: 20081103
  Receipt Date: 20081103
  Transmission Date: 20090506
  Serious: No
  Sender: FDA-Public Use
  Company Number: None

PATIENT

DRUGS (2)
  1. METHYLPREDNISOLONE 16MG TAB [Suspect]
     Dosage: TABLET
  2. ALENDRONATE SODIUM [Suspect]
     Dosage: TABLET

REACTIONS (4)
  - ABDOMINAL DISCOMFORT [None]
  - DRUG DISPENSING ERROR [None]
  - MEDICATION ERROR [None]
  - WRONG DRUG ADMINISTERED [None]
